FAERS Safety Report 7020131-X (Version None)
Quarter: 2010Q3

REPORT INFORMATION
  Report Type: 
  Country: None (occurrence: None)
  Receive Date: 20100929
  Receipt Date: 20100917
  Transmission Date: 20110219
  Serious: Yes (Other)
  Sender: FDA-Public Use
  Company Number: US-ELI_LILLY_AND_COMPANY-US201009005393

PATIENT
  Sex: Male

DRUGS (4)
  1. EFFIENT [Suspect]
     Indication: ATRIAL FIBRILLATION
     Dates: end: 20100911
  2. RYTHMOL [Concomitant]
  3. METOPROLOL TARTRATE [Concomitant]
  4. PLAVIX [Concomitant]

REACTIONS (3)
  - FALL [None]
  - OFF LABEL USE [None]
  - SUBDURAL HAEMATOMA [None]
